FAERS Safety Report 20553409 (Version 1)
Quarter: 2022Q1

REPORT INFORMATION
  Report Type: Spontaneous
  Country: US (occurrence: US)
  Receive Date: 20220304
  Receipt Date: 20220304
  Transmission Date: 20220423
  Serious: No
  Sender: FDA-Public Use
  Company Number: US-PFIZER INC-2021734351

PATIENT
  Age: 68 Year
  Sex: Female

DRUGS (1)
  1. BRAFTOVI [Suspect]
     Active Substance: ENCORAFENIB
     Indication: Breast cancer
     Dosage: UNK

REACTIONS (3)
  - Product use complaint [Unknown]
  - Off label use [Unknown]
  - Product dose omission issue [Unknown]
